FAERS Safety Report 8484192-3 (Version None)
Quarter: 2012Q2

REPORT INFORMATION
  Report Type: 
  Country: None (occurrence: None)
  Receive Date: 20120402
  Receipt Date: 20111208
  Transmission Date: 20120825
  Serious: Yes (Hospitalization)
  Sender: FDA-Public Use
  Company Number: A-US2011-56448

PATIENT
  Age: 52 Year
  Sex: Female

DRUGS (3)
  1. TRACLEER [Suspect]
     Indication: PULMONARY ARTERIAL HYPERTENSION
     Dosage: ORAL
     Route: 048
     Dates: start: 20110911
  2. REVATIO [Concomitant]
  3. CARDIZEM [Concomitant]

REACTIONS (5)
  - ABDOMINAL PAIN UPPER [None]
  - SINUSITIS [None]
  - ANAEMIA [None]
  - INFLUENZA LIKE ILLNESS [None]
  - FLUID RETENTION [None]
